FAERS Safety Report 7589442 (Version 5)
Quarter: 2014Q1

REPORT INFORMATION
  Report Type: Spontaneous
  Country: US (occurrence: US)
  Receive Date: 20100916
  Receipt Date: 20140129
  Transmission Date: 20141002
  Serious: Yes (Other)
  Sender: FDA-Public Use
  Company Number: US-ROCHE-576696

PATIENT
  Age: 20 Year
  Sex: Male
  Weight: 77.1 kg

DRUGS (8)
  1. ACCUTANE [Suspect]
     Indication: ACNE
     Route: 048
  2. ACCUTANE [Suspect]
     Route: 048
     Dates: start: 19960513, end: 19960731
  3. ACCUTANE [Suspect]
     Dosage: 20 MG IN MORNING AND 40 MG IN EVENING
     Route: 048
  4. ACCUTANE [Suspect]
     Route: 048
  5. ACCUTANE [Suspect]
     Route: 048
     Dates: start: 19980103, end: 19980317
  6. ACCUTANE [Suspect]
     Route: 048
  7. ACCUTANE [Suspect]
     Route: 048
     Dates: start: 20001215, end: 20010330
  8. ACCUTANE [Suspect]
     Route: 048

REACTIONS (5)
  - Colitis ulcerative [Unknown]
  - Inflammatory bowel disease [Unknown]
  - Intestinal obstruction [Unknown]
  - Proctitis ulcerative [Unknown]
  - Acne [Unknown]
